FAERS Safety Report 9086739 (Version 1)
Quarter: 2013Q1

REPORT INFORMATION
  Report Type: Spontaneous
  Country: CA (occurrence: CA)
  Receive Date: 20130131
  Receipt Date: 20130131
  Transmission Date: 20140127
  Serious: Yes (Hospitalization)
  Sender: FDA-Public Use
  Company Number: CA-MERCK-1301CAN014632

PATIENT
  Sex: Male

DRUGS (2)
  1. POSANOL [Suspect]
     Indication: ACUTE MYELOID LEUKAEMIA
     Dosage: UNK UNK, BID
     Route: 048
  2. POSANOL [Suspect]
     Dosage: 200 MG, BID
     Route: 048

REACTIONS (1)
  - Leukaemia recurrent [Unknown]
